FAERS Safety Report 7092526-X (Version None)
Quarter: 2010Q4

REPORT INFORMATION
  Report Type: 
  Country: None (occurrence: None)
  Receive Date: 20101108
  Receipt Date: 20101108
  Transmission Date: 20110411
  Serious: Yes (Other)
  Sender: FDA-Public Use
  Company Number: None

PATIENT
  Age: 4 Year
  Sex: Male
  Weight: 19.5047 kg

DRUGS (1)
  1. CEFDINIR [Suspect]
     Indication: EAR INFECTION
     Dosage: 1/2 TSP 2X DAILY PO
     Route: 048
     Dates: start: 20101025, end: 20101031

REACTIONS (4)
  - CONTUSION [None]
  - JOINT SWELLING [None]
  - PAIN [None]
  - URTICARIA [None]
